FAERS Safety Report 5223759-2 (Version None)
Quarter: 2007Q1

REPORT INFORMATION
  Report Type: 
  Country: None (occurrence: None)
  Receive Date: 20070125
  Receipt Date: 20070115
  Transmission Date: 20070707
  Serious: Yes (Hospitalization, Other)
  Sender: FDA-Public Use
  Company Number: HQWYE724117JAN07

PATIENT
  Age: 45 Year
  Sex: Male

DRUGS (2)
  1. EFFEXOR [Suspect]
     Dosage: 750 MG (OVERDOSE AMOUNT)
     Dates: start: 20001101, end: 20001101
  2. ALCOHOL (ETHANOL,) [Suspect]
     Dates: start: 20001101, end: 20001101

REACTIONS (2)
  - ALCOHOL POISONING [None]
  - OVERDOSE [None]
